FAERS Safety Report 4694118-6 (Version None)
Quarter: 2005Q2

REPORT INFORMATION
  Report Type: 
  Country: None (occurrence: None)
  Receive Date: 20050616
  Receipt Date: 20050616
  Transmission Date: 20051028
  Serious: Yes (Hospitalization)
  Sender: FDA-Public Use
  Company Number: None

PATIENT
  Sex: Female
  Weight: 56.6996 kg

DRUGS (9)
  1. FENTANYL [Suspect]
     Indication: PAIN
     Dosage: SEE B5
     Dates: start: 20050321, end: 20050604
  2. FENTANYL [Suspect]
     Indication: PAIN
  3. ADVAIR [Concomitant]
  4. PROVENTIL [Concomitant]
  5. COPAXONE [Concomitant]
  6. PROVIGIL [Concomitant]
  7. PROZAC [Concomitant]
  8. MICROGESTIN FE [Concomitant]
  9. PERCOCET [Concomitant]

REACTIONS (6)
  - CRYING [None]
  - HYPOTENSION [None]
  - INADEQUATE ANALGESIA [None]
  - MUSCLE SPASMS [None]
  - PAIN [None]
  - PHARMACEUTICAL PRODUCT COMPLAINT [None]
